APPROVED DRUG PRODUCT: REMIFENTANIL HYDROCHLORIDE
Active Ingredient: REMIFENTANIL HYDROCHLORIDE
Strength: EQ 2MG BASE/VIAL
Dosage Form/Route: INJECTABLE;INJECTION
Application: A215635 | Product #002 | TE Code: AP
Applicant: NIVAGEN PHARMACEUTICALS INC
Approved: Jun 28, 2024 | RLD: No | RS: No | Type: RX